FAERS Safety Report 9814740 (Version 1)
Quarter: 2014Q1

REPORT INFORMATION
  Report Type: Spontaneous
  Country: US (occurrence: US)
  Receive Date: 20140113
  Receipt Date: 20140113
  Transmission Date: 20141002
  Serious: No
  Sender: FDA-Public Use
  Company Number: US-SANOFI-AVENTIS-2013SA051295

PATIENT
  Sex: Female

DRUGS (2)
  1. DOCETAXEL WINTHROP [Suspect]
     Indication: BREAST CANCER
     Dates: end: 20130513
  2. DOCETAXEL WINTHROP [Suspect]
     Indication: BREAST CANCER
     Dates: end: 20130513

REACTIONS (2)
  - Vein discolouration [Unknown]
  - Skin discolouration [Unknown]
